FAERS Safety Report 8613159-7 (Version None)
Quarter: 2012Q3

REPORT INFORMATION
  Report Type: 
  Country: None (occurrence: None)
  Receive Date: 20120822
  Receipt Date: 20120801
  Transmission Date: 20120928
  Serious: Yes (Disabling)
  Sender: FDA-Public Use
  Company Number: JP-009507513-1208JPN000802

PATIENT

DRUGS (5)
  1. TELAVIC [Suspect]
     Indication: HEPATITIS C
     Dosage: 2250 MG, ONCE
     Route: 048
     Dates: start: 20120529, end: 20120531
  2. URSO 250 [Concomitant]
     Indication: HEPATITIS C
     Dosage: 300 MG, ONCE
     Route: 048
     Dates: start: 20100715
  3. PEG-INTRON [Suspect]
     Indication: HEPATITIS C
     Dosage: 1.5MCG/KG/WEEK
     Route: 058
     Dates: start: 20120529
  4. TELAVIC [Suspect]
     Route: 048
     Dates: start: 20120601
  5. REBETOL [Suspect]
     Indication: HEPATITIS C
     Route: 048
     Dates: start: 20120529

REACTIONS (2)
  - RASH [None]
  - CHEILITIS [None]
